FAERS Safety Report 9714168 (Version 1)
Quarter: 2013Q4

REPORT INFORMATION
  Report Type: Spontaneous
  Country: US (occurrence: US)
  Receive Date: 20131126
  Receipt Date: 20131126
  Transmission Date: 20140711
  Serious: No
  Sender: FDA-Public Use
  Company Number: US-GILEAD-2008-0019122

PATIENT
  Age: 60 Year
  Sex: Female
  Weight: 108.86 kg

DRUGS (10)
  1. LETAIRIS [Suspect]
     Indication: PULMONARY ARTERIAL HYPERTENSION
     Route: 048
     Dates: start: 20080311
  2. REVATIO [Concomitant]
  3. GLIPIZIDE [Concomitant]
  4. CITALOPRAM [Concomitant]
  5. TRAZODONE [Concomitant]
  6. ALLEGRA [Concomitant]
  7. VITAMIN B [Concomitant]
  8. CALCIUM [Concomitant]
  9. FOLIC ACID [Concomitant]
  10. VITAMIN C [Concomitant]

REACTIONS (2)
  - Weight increased [Not Recovered/Not Resolved]
  - Oedema [Not Recovered/Not Resolved]
